FAERS Safety Report 7513700-1 (Version None)
Quarter: 2011Q2

REPORT INFORMATION
  Report Type: 
  Country: None (occurrence: None)
  Receive Date: 20110531
  Receipt Date: 20110523
  Transmission Date: 20111010
  Serious: Yes (Hospitalization)
  Sender: FDA-Public Use
  Company Number: US-US-EMD SERONO, INC.-7061563

PATIENT
  Sex: Female

DRUGS (2)
  1. ANTIDEPRESSANT [Concomitant]
     Indication: DEPRESSION
  2. REBIF [Suspect]
     Indication: MULTIPLE SCLEROSIS
     Route: 058
     Dates: start: 20110214, end: 20110326

REACTIONS (4)
  - MULTIPLE SCLEROSIS RELAPSE [None]
  - SUICIDAL IDEATION [None]
  - DEPRESSION [None]
  - PULMONARY OEDEMA [None]
